FAERS Safety Report 4705355-6 (Version None)
Quarter: 2005Q2

REPORT INFORMATION
  Report Type: 
  Country: None (occurrence: None)
  Receive Date: 20050629
  Receipt Date: 20050620
  Transmission Date: 20051028
  Serious: Yes (Hospitalization)
  Sender: FDA-Public Use
  Company Number: GXKR2005DK01263

PATIENT
  Age: 51 Year
  Sex: Female
  Weight: 70.4 kg

DRUGS (1)
  1. FLUOXETINE [Suspect]
     Dosage: 20 MG, ORAL
     Route: 048
     Dates: start: 20050501, end: 20050515

REACTIONS (8)
  - CONFUSIONAL STATE [None]
  - GRAND MAL CONVULSION [None]
  - HYPOKALAEMIA [None]
  - HYPOMAGNESAEMIA [None]
  - HYPONATRAEMIA [None]
  - HYPOPHOSPHATAEMIA [None]
  - SEROTONIN SYNDROME [None]
  - TREMOR [None]
